FAERS Safety Report 14480411 (Version 1)
Quarter: 2018Q1

REPORT INFORMATION
  Report Type: Spontaneous
  Country: US (occurrence: US)
  Receive Date: 20180201
  Receipt Date: 20180201
  Transmission Date: 20180509
  Serious: Yes (Other)
  Sender: FDA-Public Use
  Company Number: None

PATIENT

DRUGS (1)
  1. LINEZOLID. [Suspect]
     Active Substance: LINEZOLID

REACTIONS (4)
  - Blood pressure systolic increased [None]
  - Therapy cessation [None]
  - Pyrexia [None]
  - Serotonin syndrome [None]
